FAERS Safety Report 5489039-5 (Version None)
Quarter: 2007Q4

REPORT INFORMATION
  Report Type: 
  Country: None (occurrence: None)
  Receive Date: 20071018
  Receipt Date: 20071015
  Transmission Date: 20080405
  Serious: Yes (Death, Life-Threatening)
  Sender: FDA-Public Use
  Company Number: PHRM2007FR02246

PATIENT
  Age: 2 Month
  Sex: Male
  Weight: 3.3 kg

DRUGS (1)
  1. AREDIA [Suspect]
     Indication: OSTEOGENESIS IMPERFECTA
     Dosage: 1.5 MG, ONCE/SINGLE
     Route: 042
     Dates: start: 20070706, end: 20070706

REACTIONS (8)
  - BLOOD PRESSURE IMMEASURABLE [None]
  - BRONCHOSPASM [None]
  - HYPERCAPNIA [None]
  - HYPERTHERMIA [None]
  - RESPIRATORY DISORDER [None]
  - SKIN DISCOLOURATION [None]
  - TACHYCARDIA [None]
  - TACHYPNOEA [None]
